FAERS Safety Report 11843736 (Version 1)
Quarter: 2015Q4

REPORT INFORMATION
  Report Type: Spontaneous
  Country: US (occurrence: US)
  Receive Date: 20151217
  Receipt Date: 20151217
  Transmission Date: 20160305
  Serious: Yes (Other)
  Sender: FDA-Public Use
  Company Number: US-HOSPIRA-2572709

PATIENT
  Sex: Male

DRUGS (1)
  1. ETOMIDATE. [Suspect]
     Active Substance: ETOMIDATE
     Indication: CARDIO-RESPIRATORY ARREST
     Dosage: UNKNOWN, UNKNOWN
     Route: 065
     Dates: start: 20141001

REACTIONS (2)
  - Therapy cessation [Unknown]
  - Needle issue [Unknown]

NARRATIVE: CASE EVENT DATE: 20141001
